FAERS Safety Report 6060186-2 (Version None)
Quarter: 2009Q1

REPORT INFORMATION
  Report Type: 
  Country: None (occurrence: None)
  Receive Date: 20090128
  Receipt Date: 20090116
  Transmission Date: 20090719
  Serious: No
  Sender: FDA-Public Use
  Company Number: 236125J08USA

PATIENT
  Age: 58 Year
  Sex: Female
  Weight: 74 kg

DRUGS (8)
  1. REBIF [Suspect]
     Indication: MULTIPLE SCLEROSIS
     Dosage: 44 MCG, 3 IN 1, SUBCUTANEOUS
     Route: 058
     Dates: start: 20060509
  2. ALBUTEROL (SALBUTAMOL/00139501/) [Concomitant]
  3. SINGULAIR (MONTELUKAST/01362601/) [Concomitant]
  4. AMANTADINE HCL [Concomitant]
  5. HYDROCODONE BITARTRATE [Concomitant]
  6. NASONEX [Concomitant]
  7. ZETIA [Concomitant]
  8. MEVACOR [Concomitant]

REACTIONS (5)
  - CONDITION AGGRAVATED [None]
  - HEPATIC ENZYME INCREASED [None]
  - INJECTION SITE SWELLING [None]
  - URINE ODOUR ABNORMAL [None]
  - WOUND COMPLICATION [None]
